FAERS Safety Report 13368331 (Version 1)
Quarter: 2017Q1

REPORT INFORMATION
  Report Type: Report from Study
  Country: None (occurrence: US)
  Receive Date: 20170324
  Receipt Date: 20170324
  Transmission Date: 20170429
  Serious: Yes (Other)
  Sender: FDA-Public Use
  Company Number: US-ABBVIE-17K-163-1913088-00

PATIENT
  Age: 48 Year
  Sex: Male

DRUGS (2)
  1. ULTRA CO Q10 [Concomitant]
     Indication: CARDIOMEGALY
  2. HUMIRA [Suspect]
     Active Substance: ADALIMUMAB
     Indication: HIDRADENITIS
     Route: 058

REACTIONS (7)
  - Throat tightness [Unknown]
  - Oropharyngeal pain [Unknown]
  - Road traffic accident [Unknown]
  - Meniscus injury [Unknown]
  - Hidradenitis [Unknown]
  - Weight abnormal [Unknown]
  - Drug ineffective [Unknown]

NARRATIVE: CASE EVENT DATE: 201703
